FAERS Safety Report 7700743-8 (Version None)
Quarter: 2011Q3

REPORT INFORMATION
  Report Type: 
  Country: None (occurrence: None)
  Receive Date: 20110822
  Receipt Date: 20110809
  Transmission Date: 20111222
  Serious: Yes (Hospitalization)
  Sender: FDA-Public Use
  Company Number: US-ROCHE-795441

PATIENT
  Sex: Female
  Weight: 116 kg

DRUGS (7)
  1. BEVACIZUMAB [Suspect]
     Dosage: CURRENT CYCLE, 5 DOSES PRIOR TO SAE
     Route: 065
     Dates: start: 20110722
  2. BEVACIZUMAB [Suspect]
     Indication: BREAST CANCER
     Dosage: CYCLE:1
     Route: 065
     Dates: start: 20110506
  3. CARBOPLATIN [Suspect]
     Indication: BREAST CANCER
     Route: 042
     Dates: start: 20110722
  4. ABRAXANE [Suspect]
     Indication: BREAST CANCER
     Route: 042
     Dates: start: 20110722
  5. METFORMIN HYDROCHLORIDE [Concomitant]
     Route: 048
  6. TRAZODONE HCL [Concomitant]
     Indication: SOMNOLENCE
     Dosage: FREQUENCY: HS
     Route: 048
  7. BYSTOLIC [Concomitant]
     Indication: HYPERTENSION
     Route: 048

REACTIONS (8)
  - FATIGUE [None]
  - DECREASED APPETITE [None]
  - DEHYDRATION [None]
  - ANAEMIA [None]
  - DYSGEUSIA [None]
  - BLOOD CREATININE [None]
  - WEIGHT DECREASED [None]
  - GASTRITIS [None]
